FAERS Safety Report 18203237 (Version 4)
Quarter: 2020Q4

REPORT INFORMATION
  Report Type: Spontaneous
  Country: JP (occurrence: JP)
  Receive Date: 20200827
  Receipt Date: 20201014
  Transmission Date: 20210113
  Serious: Yes (Hospitalization)
  Sender: FDA-Public Use
  Company Number: JP-NOVOPROD-745506

PATIENT
  Age: 64 Year
  Sex: Male

DRUGS (3)
  1. ENARMON [TESTOSTERONE ENANTHATE] [Suspect]
     Active Substance: TESTOSTERONE ENANTHATE
     Indication: HYPOPITUITARISM
     Dosage: 125 MG, ONCE PER FOUR WEEKS
     Route: 030
  2. NORDITROPIN [Suspect]
     Active Substance: SOMATROPIN
     Indication: GROWTH HORMONE DEFICIENCY
     Dosage: 0.225 MG
     Route: 058
     Dates: start: 20130726, end: 201404
  3. NORDITROPIN [Suspect]
     Active Substance: SOMATROPIN
     Indication: HYPOPITUITARISM
     Dosage: UNK(RESUMED)
     Route: 058
     Dates: start: 20150127

REACTIONS (1)
  - Brain neoplasm [Recovered/Resolved]

NARRATIVE: CASE EVENT DATE: 201404
